FAERS Safety Report 9896427 (Version 1)
Quarter: 2014Q1

REPORT INFORMATION
  Report Type: Spontaneous
  Country: US (occurrence: US)
  Receive Date: 20140213
  Receipt Date: 20140213
  Transmission Date: 20141002
  Serious: No
  Sender: FDA-Public Use
  Company Number: US-BRISTOL-MYERS SQUIBB COMPANY-19886001

PATIENT
  Age: 45 Year
  Sex: Female
  Weight: 136.05 kg

DRUGS (1)
  1. ORENCIA [Suspect]
     Indication: RHEUMATOID ARTHRITIS
     Dosage: LAST INFUSION ON 21 NOV 2013
     Route: 042
     Dates: start: 2013

REACTIONS (1)
  - Neck pain [Unknown]
